FAERS Safety Report 22206981 (Version 1)
Quarter: 2023Q2

REPORT INFORMATION
  Report Type: Spontaneous
  Country: US (occurrence: None)
  Receive Date: 20230413
  Receipt Date: 20230413
  Transmission Date: 20230721
  Serious: No
  Sender: FDA-Public Use
  Company Number: 2023A067037

PATIENT
  Sex: Female

DRUGS (1)
  1. TEZSPIRE [Suspect]
     Active Substance: TEZEPELUMAB-EKKO
     Indication: Asthma
     Dosage: 1.91ML PFS
     Route: 058
     Dates: start: 20230315

REACTIONS (10)
  - Drug ineffective [Unknown]
  - Muscle spasms [Unknown]
  - Cough [Unknown]
  - Asthma [Unknown]
  - Depression [Unknown]
  - Fatigue [Unknown]
  - Dyspnoea [Unknown]
  - Eating disorder [Unknown]
  - Disturbance in attention [Unknown]
  - Restlessness [Unknown]
